FAERS Safety Report 20405730 (Version 1)
Quarter: 2022Q1

REPORT INFORMATION
  Report Type: Spontaneous
  Country: US (occurrence: None)
  Receive Date: 20220130
  Receipt Date: 20220130
  Transmission Date: 20220423
  Serious: Yes (Life-Threatening, Other)
  Sender: FDA-Public Use
  Company Number: None

PATIENT
  Age: 40 Year
  Sex: Female

DRUGS (1)
  1. AIMOVIG [Suspect]
     Active Substance: ERENUMAB-AOOE
     Indication: Migraine

REACTIONS (4)
  - Injection site rash [None]
  - Headache [None]
  - Vision blurred [None]
  - Hypertensive crisis [None]

NARRATIVE: CASE EVENT DATE: 20220114
